FAERS Safety Report 6917177-6 (Version None)
Quarter: 2010Q3

REPORT INFORMATION
  Report Type: 
  Country: None (occurrence: None)
  Receive Date: 20100721
  Receipt Date: 20100521
  Transmission Date: 20110219
  Serious: Yes (Other)
  Sender: FDA-Public Use
  Company Number: 2010AL000095

PATIENT
  Sex: Male
  Weight: 51 kg

DRUGS (3)
  1. FOLOTYN [Suspect]
     Indication: PERIPHERAL T-CELL LYMPHOMA UNSPECIFIED
     Dosage: 20 MG/M**2;1X;IV
     Route: 042
     Dates: start: 20100423, end: 20100423
  2. CON MEDS =UNKNOWN [Concomitant]
  3. PREV MEDS =UNKNOWN [Concomitant]

REACTIONS (1)
  - THROMBOCYTOPENIA [None]
